FAERS Safety Report 6677709-2 (Version None)
Quarter: 2010Q2

REPORT INFORMATION
  Report Type: 
  Country: None (occurrence: None)
  Receive Date: 20100412
  Receipt Date: 20100402
  Transmission Date: 20101027
  Serious: Yes (Hospitalization)
  Sender: FDA-Public Use
  Company Number: US-AMGEN-KDL403756

PATIENT
  Sex: Male
  Weight: 136.2 kg

DRUGS (6)
  1. PROCRIT [Suspect]
     Indication: ANAEMIA
     Route: 058
     Dates: start: 20091001
  2. CLONIDINE [Concomitant]
     Route: 048
  3. VITRON-C [Concomitant]
     Route: 048
  4. DITROPAN [Concomitant]
     Route: 048
  5. CORGARD [Concomitant]
     Route: 048
  6. ALDACTONE [Concomitant]
     Route: 048

REACTIONS (3)
  - AMNESIA [None]
  - DEHYDRATION [None]
  - DRUG DOSE OMISSION [None]
